FAERS Safety Report 11685828 (Version 1)
Quarter: 2015Q4

REPORT INFORMATION
  Report Type: Spontaneous
  Country: IT (occurrence: IT)
  Receive Date: 20151030
  Receipt Date: 20151030
  Transmission Date: 20160304
  Serious: Yes (Hospitalization)
  Sender: FDA-Public Use
  Company Number: IT-MYLANLABS-2015M1036913

PATIENT

DRUGS (7)
  1. CICLOSPORIN [Suspect]
     Active Substance: CYCLOSPORINE
     Indication: IMMUNOSUPPRESSANT DRUG THERAPY
     Dosage: UNK
     Route: 065
  2. COLISTIN [Suspect]
     Active Substance: COLISTIN
     Dosage: 6 MILLION IU, UNK
     Route: 042
  3. COLISTIN [Suspect]
     Active Substance: COLISTIN
     Dosage: 4.5 MILLION IU, BID
     Route: 042
  4. MYCOPHENOLIC ACID. [Suspect]
     Active Substance: MYCOPHENOLIC ACID
     Indication: IMMUNOSUPPRESSANT DRUG THERAPY
     Dosage: UNK
     Route: 065
  5. PREDNISONE. [Suspect]
     Active Substance: PREDNISONE
     Indication: IMMUNOSUPPRESSANT DRUG THERAPY
     Route: 065
  6. COLISTIN [Suspect]
     Active Substance: COLISTIN
     Indication: PRODUCT USED FOR UNKNOWN INDICATION
     Dosage: 2 MILLION IU, TID
     Route: 042
  7. COLISTIN [Suspect]
     Active Substance: COLISTIN
     Dosage: 3 MILLION IU, BID
     Route: 042

REACTIONS (4)
  - Renal injury [Recovered/Resolved]
  - Sepsis syndrome [Recovered/Resolved]
  - Acinetobacter infection [Recovered/Resolved]
  - Thrombotic thrombocytopenic purpura [Recovered/Resolved]
